FAERS Safety Report 13861317 (Version 3)
Quarter: 2017Q3

REPORT INFORMATION
  Report Type: Spontaneous
  Country: FR (occurrence: FR)
  Receive Date: 20170811
  Receipt Date: 20170912
  Transmission Date: 20171127
  Serious: Yes (Other)
  Sender: FDA-Public Use
  Company Number: FR-JNJFOC-20170807703

PATIENT
  Sex: Female

DRUGS (2)
  1. HALDOL DECANOAS [Suspect]
     Active Substance: HALOPERIDOL DECANOATE
     Indication: PRODUCT USED FOR UNKNOWN INDICATION
     Dosage: 3 AMPULES
     Route: 050
  2. TIAPRIDAL [Suspect]
     Active Substance: TIAPRIDE HYDROCHLORIDE
     Indication: PRODUCT USED FOR UNKNOWN INDICATION
     Route: 065

REACTIONS (10)
  - Bone pain [Unknown]
  - Tetany [Unknown]
  - Increased appetite [Unknown]
  - Urinary incontinence [Unknown]
  - Oedema peripheral [Unknown]
  - Asthenia [Unknown]
  - Blindness unilateral [Unknown]
  - Treatment noncompliance [Unknown]
  - Urine odour abnormal [Unknown]
  - Vertigo [Unknown]
